FAERS Safety Report 17009586 (Version 3)
Quarter: 2019Q4

REPORT INFORMATION
  Report Type: Spontaneous
  Country: CN (occurrence: CN)
  Receive Date: 20191108
  Receipt Date: 20191128
  Transmission Date: 20200122
  Serious: Yes (Hospitalization)
  Sender: FDA-Public Use
  Company Number: CN-009507513-1911CHN001040

PATIENT
  Age: 4 Year
  Sex: Female
  Weight: 14.5 kg

DRUGS (4)
  1. SINGULAIR [Suspect]
     Active Substance: MONTELUKAST SODIUM
     Indication: ALLERGIC COUGH
     Dosage: 1 BAG, 4 MILLIGRAM, AT NIGHT
     Route: 048
     Dates: start: 20191010, end: 20191012
  2. SINGULAIR [Suspect]
     Active Substance: MONTELUKAST SODIUM
     Dosage: 1 BAG OF SINGULAIR EVERY EVENING
     Route: 048
     Dates: start: 20191029, end: 20191031
  3. XIAO ER CHI QIAO QING RE KE LI [Concomitant]
     Dosage: 2 GRAM, 1 BAG EVERY MORNING AND EVENING
     Dates: start: 20191029, end: 20191031
  4. XIAO ER CHI QIAO QING RE KE LI [Concomitant]
     Dosage: UNK, BID
     Dates: start: 20191010, end: 20191012

REACTIONS (16)
  - Constipation [Recovered/Resolved]
  - Upper respiratory tract infection [Recovered/Resolved]
  - Nasopharyngitis [Unknown]
  - Abdominal pain [Recovered/Resolved]
  - Drug effective for unapproved indication [Unknown]
  - Tonsillar hypertrophy [Unknown]
  - Red blood cell sedimentation rate increased [Unknown]
  - Pelvic fluid collection [Unknown]
  - Haematuria [Unknown]
  - Erythema [Unknown]
  - Urine ketone body present [Unknown]
  - Food allergy [Unknown]
  - Gastroenteritis [Recovered/Resolved]
  - Flatulence [Unknown]
  - Nausea [Recovered/Resolved]
  - Lymphadenopathy [Unknown]

NARRATIVE: CASE EVENT DATE: 2019
